FAERS Safety Report 17043580 (Version 3)
Quarter: 2019Q4

REPORT INFORMATION
  Report Type: Spontaneous
  Country: US (occurrence: US)
  Receive Date: 20191118
  Receipt Date: 20191231
  Transmission Date: 20200122
  Serious: No
  Sender: FDA-Public Use
  Company Number: US-ACTELION-A-US2019-198257

PATIENT
  Age: 4 Year
  Sex: Female

DRUGS (4)
  1. TRACLEER [Suspect]
     Active Substance: BOSENTAN
     Indication: PULMONARY ARTERIAL HYPERTENSION
     Dosage: 1.56 MG, BID TABLET DISOLVED IN WATER
     Route: 048
     Dates: start: 20161129
  2. AMOXICILLIN. [Concomitant]
     Active Substance: AMOXICILLIN
  3. SILDENAFIL. [Concomitant]
     Active Substance: SILDENAFIL
  4. ASPIRIN. [Concomitant]
     Active Substance: ASPIRIN

REACTIONS (3)
  - Pyrexia [Recovered/Resolved]
  - Chest pain [Recovered/Resolved]
  - Upper respiratory tract infection [Recovered/Resolved]

NARRATIVE: CASE EVENT DATE: 20191206
